FAERS Safety Report 9667985 (Version 4)
Quarter: 2014Q2

REPORT INFORMATION
  Report Type: Spontaneous
  Country: US (occurrence: US)
  Receive Date: 20131104
  Receipt Date: 20140424
  Transmission Date: 20141212
  Serious: Yes (Hospitalization)
  Sender: FDA-Public Use
  Company Number: US-GLAXOSMITHKLINE-A1048128A

PATIENT
  Age: 66 Year
  Sex: Male

DRUGS (1)
  1. SORIATANE [Suspect]
     Indication: SKIN DISORDER
     Dosage: 25MG UNKNOWN
     Route: 065
     Dates: start: 20131019

REACTIONS (2)
  - Staphylococcal infection [Unknown]
  - Knee arthroplasty [Unknown]
